FAERS Safety Report 5153621-5 (Version None)
Quarter: 2006Q4

REPORT INFORMATION
  Report Type: 
  Country: None (occurrence: None)
  Receive Date: 20061113
  Receipt Date: 20061025
  Transmission Date: 20070319
  Serious: Yes (Other)
  Sender: FDA-Public Use
  Company Number: 2006132140

PATIENT
  Age: 19 Year
  Sex: Male

DRUGS (1)
  1. NEURONTIN [Suspect]
     Indication: MUSCLE SPASMS
     Dosage: 400 MG (400 MG, 1 IN 1 D)
     Dates: start: 20061023

REACTIONS (5)
  - EOSINOPHILIA [None]
  - LYMPHADENOPATHY [None]
  - PYREXIA [None]
  - SWELLING [None]
  - TONSILLITIS [None]
